FAERS Safety Report 8961075 (Version 2)
Quarter: 2013Q1

REPORT INFORMATION
  Report Type: Spontaneous
  Country: GB (occurrence: GB)
  Receive Date: 20121212
  Receipt Date: 20130321
  Transmission Date: 20140127
  Serious: Yes (Death, Hospitalization)
  Sender: FDA-Public Use
  Company Number: GB-JNJFOC-2001077489GB

PATIENT
  Age: 82 Year
  Sex: Female

DRUGS (11)
  1. MOTRIN [Suspect]
     Indication: INFLUENZA
     Dosage: FREQUENCY TEXT: QD DAILY DOSE TEXT: 1200 MILLIGRAM, QD DAILY DOSE QTY: 1200 MG
     Route: 048
     Dates: start: 20000102
  2. MOTRIN [Suspect]
     Indication: PAIN
     Dosage: FREQUENCY TEXT: QD DAILY DOSE TEXT: 1200 MILLIGRAM, QD DAILY DOSE QTY: 1200 MG
     Route: 048
     Dates: start: 20000102
  3. CO-PROXAMOL [Concomitant]
     Dosage: FREQUENCY TEXT: PRN DAILY DOSE TEXT: 2 TAB. PRN
  4. ALLOPURINOL [Concomitant]
     Dosage: FREQUENCY TEXT: QD DAILY DOSE TEXT: 300 MILLIGRAM, QD DAILY DOSE QTY: 300 MG
  5. MADOPAR [Concomitant]
     Dosage: FREQUENCY TEXT: TID DAILY DOSE TEXT: 62.5 MILLIGRAM, TID DAILY DOSE QTY: 187.5 MG
  6. LACTULOSE [Concomitant]
     Dosage: FREQUENCY TEXT: BID DAILY DOSE TEXT: 10 MILLILITERS, BID DAILY DOSE QTY: 20 MILLILITERS
  7. OMEPRAZOLE [Concomitant]
     Dosage: FREQUENCY TEXT: QD DAILY DOSE TEXT: 20 MILLIGRAM, QD DAILY DOSE QTY: 20 MG
  8. CANDESARTAN [Concomitant]
     Dosage: FREQUENCY TEXT: QD DAILY DOSE TEXT: 4 MILLIGRAM, QD DAILY DOSE QTY: 4 MG
  9. SPIRONOLACTONE [Concomitant]
     Dosage: FREQUENCY TEXT: QD DAILY DOSE TEXT: 25 MILLIGRAM, QD DAILY DOSE QTY: 25 MG
  10. UNKNOWN MEDICATION [Concomitant]
     Dosage: FREQUENCY TEXT: PRN DAILY DOSE TEXT: UNK, PRN
  11. GTN [Concomitant]
     Route: 065

REACTIONS (9)
  - Gastritis [Fatal]
  - Circulatory collapse [Fatal]
  - Duodenitis [Fatal]
  - Melaena [Fatal]
  - Anaemia [Fatal]
  - Shock [Fatal]
  - Nausea [Unknown]
  - Vomiting [Unknown]
  - Abdominal pain [Unknown]
